FAERS Safety Report 7646817-1 (Version None)
Quarter: 2011Q3

REPORT INFORMATION
  Report Type: 
  Country: None (occurrence: None)
  Receive Date: 20110725
  Receipt Date: 20110714
  Transmission Date: 20111222
  Serious: Yes (Other)
  Sender: FDA-Public Use
  Company Number: 1000022189

PATIENT
  Sex: Female

DRUGS (1)
  1. SAVELLA [Suspect]
     Dosage: 100 MG BID (100 MG,2 IN 1 D), ORAL
     Route: 048
     Dates: start: 20100312, end: 20100317

REACTIONS (2)
  - RASH GENERALISED [None]
  - ANGIOEDEMA [None]
